FAERS Safety Report 23873441 (Version 2)
Quarter: 2024Q2

REPORT INFORMATION
  Report Type: Other
  Country: IE (occurrence: None)
  Receive Date: 20240520
  Receipt Date: 20240610
  Transmission Date: 20240716
  Serious: Yes (Other)
  Sender: FDA-Public Use
  Company Number: IE-ROCHE-3562201

PATIENT
  Sex: Female

DRUGS (2)
  1. TOCILIZUMAB [Suspect]
     Active Substance: TOCILIZUMAB
     Indication: Product used for unknown indication
     Dosage: 162 MGS X 1 PRE-FILLED PEN
     Route: 058
     Dates: start: 20240509
  2. TOCILIZUMAB [Suspect]
     Active Substance: TOCILIZUMAB
     Route: 058
     Dates: start: 20240507

REACTIONS (5)
  - Pain [Unknown]
  - Hypoaesthesia [Unknown]
  - Pharyngeal ulceration [Unknown]
  - Conjunctivitis [Recovered/Resolved]
  - Tongue ulceration [Unknown]
